FAERS Safety Report 24908706 (Version 1)
Quarter: 2025Q1

REPORT INFORMATION
  Report Type: Spontaneous
  Country: EG (occurrence: EG)
  Receive Date: 20250131
  Receipt Date: 20250131
  Transmission Date: 20250409
  Serious: Yes (Other)
  Sender: HIKMA
  Company Number: EG-HIKMA PHARMACEUTICALS-EG-H14001-25-00837

PATIENT
  Age: 42 Year
  Sex: Male
  Weight: 74 kg

DRUGS (4)
  1. IRINOTECAN [Suspect]
     Active Substance: IRINOTECAN
     Indication: Colon cancer metastatic
     Dosage: 306 MILLIGRAM, QOW
     Route: 042
     Dates: start: 20241102, end: 20241102
  2. IRINOTECAN [Suspect]
     Active Substance: IRINOTECAN
     Dosage: 306 MILLIGRAM, QOW
     Route: 042
     Dates: start: 20241102, end: 20241102
  3. LEUCOVORIN CALCIUM [Suspect]
     Active Substance: LEUCOVORIN CALCIUM
     Indication: Colon cancer metastatic
     Dosage: 340 MILLIGRAM, QOW
     Route: 042
     Dates: start: 20241102, end: 20241103
  4. FLUOROURACIL [Suspect]
     Active Substance: FLUOROURACIL
     Indication: Colon cancer metastatic
     Dosage: 1700 MILLIGRAM, QOW
     Route: 042
     Dates: start: 20241102, end: 20241103

REACTIONS (1)
  - Anaemia [Recovered/Resolved]

NARRATIVE: CASE EVENT DATE: 20241117
